FAERS Safety Report 9040281 (Version 1)
Quarter: 2013Q1

REPORT INFORMATION
  Report Type: Spontaneous
  Country: US (occurrence: US)
  Receive Date: 20130129
  Receipt Date: 20130129
  Transmission Date: 20140127
  Serious: No
  Sender: FDA-Public Use
  Company Number: US-ABBOTT-12P-163-0892036-00

PATIENT
  Age: 63 Year
  Sex: Male
  Weight: 104.42 kg

DRUGS (2)
  1. HUMIRA 40 MG/0.8 ML PEN [Suspect]
     Indication: COLITIS ULCERATIVE
  2. HUMIRA 40 MG/0.8 ML PEN [Suspect]
     Indication: POLYARTHRITIS

REACTIONS (2)
  - Incorrect route of drug administration [Recovered/Resolved]
  - Off label use [Unknown]
